FAERS Safety Report 4973724-5 (Version None)
Quarter: 2006Q2

REPORT INFORMATION
  Report Type: 
  Country: None (occurrence: None)
  Receive Date: 20060414
  Receipt Date: 20051114
  Transmission Date: 20061013
  Serious: Yes (Death, Hospitalization)
  Sender: FDA-Public Use
  Company Number: US-MERCK-0511USA02231

PATIENT
  Age: 73 Year
  Sex: Female
  Weight: 83 kg

DRUGS (6)
  1. VIOXX [Suspect]
     Indication: RHEUMATOID ARTHRITIS
     Route: 048
     Dates: start: 20020923, end: 20021020
  2. NORVASC [Concomitant]
     Indication: HYPERTENSION
     Route: 065
     Dates: start: 20020922, end: 20021022
  3. DIOVAN [Concomitant]
     Indication: HYPERTENSION
     Route: 065
     Dates: start: 20020922
  4. PLAVIX [Concomitant]
     Indication: THROMBOSIS
     Route: 065
     Dates: start: 20020923, end: 20021022
  5. ASPIRIN [Concomitant]
     Indication: THROMBOSIS
     Route: 065
  6. CELEBREX [Concomitant]
     Indication: PAIN
     Route: 065

REACTIONS (7)
  - ABDOMINAL PAIN UPPER [None]
  - ANOXIC ENCEPHALOPATHY [None]
  - CHEST PAIN [None]
  - DIZZINESS [None]
  - INTESTINAL OBSTRUCTION [None]
  - PULMONARY EMBOLISM [None]
  - THROMBOSIS [None]
